FAERS Safety Report 22131276 (Version 2)
Quarter: 2023Q1

REPORT INFORMATION
  Report Type: Spontaneous
  Country: CN (occurrence: CN)
  Receive Date: 20230323
  Receipt Date: 20230329
  Transmission Date: 20230418
  Serious: Yes (Other)
  Sender: FDA-Public Use
  Company Number: CN-002147023-NVSC2023CN065269

PATIENT
  Age: 63 Year
  Sex: Male
  Weight: 82 kg

DRUGS (1)
  1. TRAVOPROST [Suspect]
     Active Substance: TRAVOPROST
     Indication: Glaucoma
     Dosage: 0.100 ML, QD
     Route: 047
     Dates: start: 20230224, end: 20230227

REACTIONS (4)
  - Platelet distribution width decreased [Unknown]
  - Dark circles under eyes [Recovering/Resolving]
  - Red blood cell count decreased [Unknown]
  - Growth of eyelashes [Not Recovered/Not Resolved]

NARRATIVE: CASE EVENT DATE: 20230226
